FAERS Safety Report 8395607-3 (Version None)
Quarter: 2012Q2

REPORT INFORMATION
  Report Type: 
  Country: None (occurrence: None)
  Receive Date: 20120530
  Receipt Date: 20111109
  Transmission Date: 20120825
  Serious: No
  Sender: FDA-Public Use
  Company Number: US-GLAXOSMITHKLINE-A0952486A

PATIENT
  Age: 73 Year
  Sex: Male

DRUGS (6)
  1. SPIRIVA [Concomitant]
  2. VENTOLIN [Suspect]
     Indication: PRODUCT USED FOR UNKNOWN INDICATION
     Dosage: 2PUFF SEE DOSAGE TEXT
     Route: 055
  3. ATENOLOL [Concomitant]
  4. PREDNISONE TAB [Concomitant]
  5. PLAVIX [Concomitant]
  6. SIMVASTATIN [Concomitant]

REACTIONS (2)
  - DRUG INEFFECTIVE [None]
  - PRODUCT QUALITY ISSUE [None]
